FAERS Safety Report 7817837-9 (Version None)
Quarter: 2011Q4

REPORT INFORMATION
  Report Type: 
  Country: None (occurrence: None)
  Receive Date: 20111012
  Receipt Date: 20110930
  Transmission Date: 20120403
  Serious: Yes (Congenital Anomaly, Other)
  Sender: FDA-Public Use
  Company Number: AUR-APL-2010-00758

PATIENT
  Sex: Male
  Weight: 3.22 kg

DRUGS (8)
  1. EFAVIRENZ (EFAVIRENZ) (EFAVIRENZ) [Suspect]
     Indication: HIV INFECTION
     Route: 064
     Dates: start: 20060426
  2. LOPINAVIR (LOPINAVIR) [Suspect]
     Indication: HIV INFECTION
     Route: 064
     Dates: start: 20061018
  3. LAMIVUDINE (LAMIVUDINE) (LAMIVUDINE) [Suspect]
     Indication: HIV INFECTION
     Route: 064
     Dates: start: 20060426
  4. LAMIVUDINE (LAMIVUDINE) (LAMIVUDINE) [Suspect]
     Indication: HIV INFECTION
     Route: 064
     Dates: start: 20060426
  5. NELFINAVIR MESILATE (NELFINAVIR MESILATE) [Suspect]
     Indication: HIV INFECTION
     Route: 064
     Dates: start: 20060610, end: 20061018
  6. ZIDOVUDINE [Suspect]
     Indication: HIV INFECTION
     Route: 064
     Dates: start: 20060426
  7. NELFINAVIR MESILATE (NELFINAVIR MESILATE) [Suspect]
     Indication: HIV INFECTION
     Route: 064
     Dates: start: 20060610, end: 20061018
  8. RITONAVIR [Suspect]
     Indication: HIV INFECTION
     Route: 064
     Dates: start: 20061018

REACTIONS (4)
  - SPLENOMEGALY [None]
  - HEPATIC CYST [None]
  - SICKLE CELL ANAEMIA [None]
  - CONGENITAL ANOMALY [None]
